FAERS Safety Report 20572605 (Version 1)
Quarter: 2022Q1

REPORT INFORMATION
  Report Type: Other
  Country: GB (occurrence: GB)
  Receive Date: 20220309
  Receipt Date: 20220309
  Transmission Date: 20220424
  Serious: No
  Sender: FDA-Public Use
  Company Number: GB-MHRA-MED-202202232112415950-EOTDM

PATIENT
  Age: 22 Year
  Sex: Male

DRUGS (1)
  1. SERTRALINE [Suspect]
     Active Substance: SERTRALINE HYDROCHLORIDE
     Indication: Major depression
     Dosage: 100 MG, QD (IN THE MORNING)
     Route: 065
     Dates: start: 2019, end: 2021

REACTIONS (2)
  - Loss of libido [Not Recovered/Not Resolved]
  - Orgasm abnormal [Unknown]

NARRATIVE: CASE EVENT DATE: 20210601
